FAERS Safety Report 16732314 (Version 6)
Quarter: 2020Q2

REPORT INFORMATION
  Report Type: Report from Study
  Country: BR (occurrence: BR)
  Receive Date: 20190822
  Receipt Date: 20200602
  Transmission Date: 20200713
  Serious: Yes (Other)
  Sender: FDA-Public Use
  Company Number: PHHY2019BR194177

PATIENT
  Age: 69 Year
  Sex: Male
  Weight: 95 kg

DRUGS (3)
  1. COSENTYX [Suspect]
     Active Substance: SECUKINUMAB
     Indication: PSORIASIS
     Dosage: 300 MG
     Route: 065
  2. COSENTYX [Suspect]
     Active Substance: SECUKINUMAB
     Indication: PSORIATIC ARTHROPATHY
     Dosage: 300 MG
     Route: 065
     Dates: start: 20170321
  3. COSENTYX [Suspect]
     Active Substance: SECUKINUMAB
     Dosage: 150 MG
     Route: 058
     Dates: start: 202001, end: 202001

REACTIONS (21)
  - Pruritus [Not Recovered/Not Resolved]
  - Swelling [Unknown]
  - Arthralgia [Unknown]
  - Disorientation [Unknown]
  - Cutaneous symptom [Unknown]
  - Psoriatic arthropathy [Not Recovered/Not Resolved]
  - Wound [Unknown]
  - Ear infection [Unknown]
  - Malaise [Not Recovered/Not Resolved]
  - Moaning [Not Recovered/Not Resolved]
  - Pain [Not Recovered/Not Resolved]
  - Skin texture abnormal [Unknown]
  - Skin disorder [Not Recovered/Not Resolved]
  - Blister [Not Recovered/Not Resolved]
  - Diabetes mellitus [Unknown]
  - Joint injury [Not Recovered/Not Resolved]
  - Nervousness [Unknown]
  - Headache [Unknown]
  - Anxiety [Not Recovered/Not Resolved]
  - Therapeutic product effect incomplete [Not Recovered/Not Resolved]
  - Otorrhoea [Unknown]

NARRATIVE: CASE EVENT DATE: 2017
